FAERS Safety Report 9624539 (Version 1)
Quarter: 2013Q4

REPORT INFORMATION
  Report Type: Spontaneous
  Country: US (occurrence: None)
  Receive Date: 20131010
  Receipt Date: 20131010
  Transmission Date: 20140711
  Serious: Yes (Hospitalization, Other)
  Sender: FDA-Public Use
  Company Number: 2013DE-001580

PATIENT
  Age: 49 Year
  Sex: 0
  Weight: 52 kg

DRUGS (1)
  1. PRIALT [Suspect]
     Indication: PAIN
     Route: 037
     Dates: start: 201302

REACTIONS (3)
  - Weight decreased [None]
  - Retching [None]
  - Decreased appetite [None]
